FAERS Safety Report 9158103 (Version 4)
Quarter: 2013Q3

REPORT INFORMATION
  Report Type: Report from Study
  Country: US (occurrence: US)
  Receive Date: 20130312
  Receipt Date: 20130703
  Transmission Date: 20140515
  Serious: Yes (Other)
  Sender: FDA-Public Use
  Company Number: US-VERTEX PHARMACEUTICALS INC.-2013-003336

PATIENT
  Age: 64 Year
  Sex: Male
  Weight: 103 kg

DRUGS (9)
  1. VX-950 (TELAPREVIR) [Suspect]
     Indication: HEPATITIS C
     Dosage: 750 MG, TID
     Route: 048
     Dates: start: 20130225
  2. PEGASYS [Suspect]
     Indication: HEPATITIS C
     Dosage: 180 ?G, QW
     Route: 058
     Dates: start: 20130125
  3. PEGASYS [Suspect]
     Dosage: 135 ?G, QW
     Route: 058
     Dates: start: 201304
  4. RIBAVIRIN [Suspect]
     Indication: HEPATITIS C
     Dosage: 400 MG AM, 200 MG PM, QD
     Route: 048
     Dates: start: 20130125
  5. RIBAVIRIN [Suspect]
     Dosage: 200 MG, BID
     Dates: start: 201304
  6. STEROID CREAM [Concomitant]
     Indication: FOLLICULITIS
  7. UV LIGHT TX [Concomitant]
     Indication: FOLLICULITIS
  8. HYDROCORTISONE [Concomitant]
     Indication: RASH
     Dosage: UNK, PRN
  9. SARNA [Concomitant]
     Indication: RASH
     Dosage: UNK, PRN

REACTIONS (8)
  - Ascites [Not Recovered/Not Resolved]
  - Dyspnoea [Not Recovered/Not Resolved]
  - Cough [Recovered/Resolved]
  - Abdominal pain [Not Recovered/Not Resolved]
  - Poor quality sleep [Not Recovered/Not Resolved]
  - Off label use [Unknown]
  - Anaemia [Not Recovered/Not Resolved]
  - Pruritus [Not Recovered/Not Resolved]
